FAERS Safety Report 7595027-5 (Version None)
Quarter: 2011Q2

REPORT INFORMATION
  Report Type: 
  Country: None (occurrence: None)
  Receive Date: 20110620
  Receipt Date: 20110330
  Transmission Date: 20111010
  Serious: Yes (Hospitalization)
  Sender: FDA-Public Use
  Company Number: UTC-006010

PATIENT
  Age: 52 Year
  Sex: Female
  Weight: 85.9 kg

DRUGS (4)
  1. LETAIRIS [Concomitant]
  2. REVATIO [Concomitant]
  3. DIURETICS (DIURETICS) [Concomitant]
  4. TYVASO [Suspect]
     Indication: PULMONARY ARTERIAL HYPERTENSION
     Dosage: 216 MCG (54 MCG, 4 IN 1 D), INHALATION
     Route: 055
     Dates: start: 20101217

REACTIONS (3)
  - HYPERKALAEMIA [None]
  - BLOOD CREATININE INCREASED [None]
  - RENAL FAILURE [None]
